FAERS Safety Report 6626038-1 (Version None)
Quarter: 2010Q1

REPORT INFORMATION
  Report Type: 
  Country: None (occurrence: None)
  Receive Date: 20100310
  Receipt Date: 20100303
  Transmission Date: 20100710
  Serious: Yes (Death, Hospitalization, Congenital Anomaly)
  Sender: FDA-Public Use
  Company Number: A0680233A

PATIENT
  Sex: Male

DRUGS (2)
  1. PAXIL [Suspect]
     Indication: FATIGUE
     Dates: start: 19960101, end: 20010101
  2. VITAMIN TAB [Concomitant]

REACTIONS (15)
  - AORTA HYPOPLASIA [None]
  - ATRIAL SEPTAL DEFECT [None]
  - CARDIAC FUNCTION DISTURBANCE POSTOPERATIVE [None]
  - COARCTATION OF THE AORTA [None]
  - CONGENITAL CORONARY ARTERY MALFORMATION [None]
  - DOUBLE OUTLET RIGHT VENTRICLE [None]
  - DRUG EXPOSURE DURING PREGNANCY [None]
  - MULTIPLE CARDIAC DEFECTS [None]
  - PULMONARY ARTERIOPATHY [None]
  - PULMONARY ARTERY STENOSIS [None]
  - PULMONARY ARTERY STENOSIS CONGENITAL [None]
  - RIGHT VENTRICLE OUTFLOW TRACT OBSTRUCTION [None]
  - TRANSIENT TACHYPNOEA OF THE NEWBORN [None]
  - TRANSPOSITION OF THE GREAT VESSELS [None]
  - VENTRICULAR SEPTAL DEFECT [None]
